FAERS Safety Report 7817546-6 (Version None)
Quarter: 2011Q4

REPORT INFORMATION
  Report Type: 
  Country: None (occurrence: None)
  Receive Date: 20111017
  Receipt Date: 20111011
  Transmission Date: 20120403
  Serious: Yes (Life-Threatening, Hospitalization)
  Sender: FDA-Public Use
  Company Number: US-JNJFOC-20111005369

PATIENT
  Age: 59 Year
  Sex: Male

DRUGS (4)
  1. OPIATES [Suspect]
     Indication: PRODUCT USED FOR UNKNOWN INDICATION
     Route: 065
  2. VICODIN [Suspect]
     Indication: PAIN
     Route: 065
  3. ULTRACET [Suspect]
     Indication: PAIN
     Route: 065
  4. BENZODIAZEPINE NOS [Suspect]
     Indication: PRODUCT USED FOR UNKNOWN INDICATION
     Route: 065

REACTIONS (18)
  - BLOOD UREA INCREASED [None]
  - PROTHROMBIN TIME PROLONGED [None]
  - BLOOD BILIRUBIN INCREASED [None]
  - BLOOD CREATINE PHOSPHOKINASE INCREASED [None]
  - MENTAL STATUS CHANGES [None]
  - SOMNOLENCE [None]
  - BLOOD CREATININE INCREASED [None]
  - DYSARTHRIA [None]
  - DRUG SCREEN POSITIVE [None]
  - CONFUSIONAL STATE [None]
  - INTERNATIONAL NORMALISED RATIO DECREASED [None]
  - LIVER FUNCTION TEST ABNORMAL [None]
  - MULTIPLE DRUG OVERDOSE [None]
  - ASPARTATE AMINOTRANSFERASE INCREASED [None]
  - TOXICITY TO VARIOUS AGENTS [None]
  - AMMONIA INCREASED [None]
  - INTERNATIONAL NORMALISED RATIO INCREASED [None]
  - ALANINE AMINOTRANSFERASE INCREASED [None]
